FAERS Safety Report 5355864-4 (Version None)
Quarter: 2007Q2

REPORT INFORMATION
  Report Type: 
  Country: None (occurrence: None)
  Receive Date: 20070530
  Receipt Date: 20061002
  Transmission Date: 20071010
  Serious: Yes (Other)
  Sender: FDA-Public Use
  Company Number: US200610000483

PATIENT
  Age: 49 Year
  Sex: Female

DRUGS (3)
  1. ZYPREXA [Suspect]
     Dosage: SEE IMAGE
     Dates: start: 20030101
  2. DEPAKOTE [Concomitant]
  3. LORAZEPAM [Concomitant]

REACTIONS (5)
  - DYSKINESIA [None]
  - FEELING ABNORMAL [None]
  - PRESCRIBED OVERDOSE [None]
  - TREMOR [None]
  - WEIGHT INCREASED [None]
